FAERS Safety Report 4727589-7 (Version None)
Quarter: 2005Q3

REPORT INFORMATION
  Report Type: 
  Country: None (occurrence: None)
  Receive Date: 20050728
  Receipt Date: 20041209
  Transmission Date: 20060218
  Serious: Yes (Life-Threatening, Other)
  Sender: FDA-Public Use
  Company Number: 200419471US

PATIENT
  Age: 19 Year
  Sex: Female

DRUGS (8)
  1. KETEK [Suspect]
     Indication: ASTHMA
     Route: 048
     Dates: start: 20041203, end: 20041207
  2. KETEK [Suspect]
     Indication: CONDITION AGGRAVATED
     Route: 048
     Dates: start: 20041203, end: 20041207
  3. KETEK [Suspect]
     Indication: SINUSITIS
     Route: 048
     Dates: start: 20041203, end: 20041207
  4. SINGULAIR [Concomitant]
  5. ADVAIR DISKUS 100/50 [Concomitant]
  6. ALLEGRA [Concomitant]
  7. XOPENEX [Concomitant]
  8. DUONEB [Concomitant]

REACTIONS (6)
  - BLINDNESS TRANSIENT [None]
  - DIZZINESS [None]
  - FEELING ABNORMAL [None]
  - NAUSEA [None]
  - VISION BLURRED [None]
  - VISUAL DISTURBANCE [None]
